FAERS Safety Report 4407754-9 (Version None)
Quarter: 2004Q3

REPORT INFORMATION
  Report Type: 
  Country: None (occurrence: None)
  Receive Date: 20040721
  Receipt Date: 20040708
  Transmission Date: 20050211
  Serious: Yes (Other)
  Sender: FDA-Public Use
  Company Number: US-JNJFOC-20040702624

PATIENT
  Age: 98 Year
  Sex: Male

DRUGS (1)
  1. IMODIUM A-D [Suspect]
     Indication: DIARRHOEA
     Dosage: 2 DOSE(S), 1 IN 1 DAY
     Dates: start: 20040701

REACTIONS (2)
  - FALL [None]
  - LOSS OF CONSCIOUSNESS [None]
